FAERS Safety Report 11138585 (Version 1)
Quarter: 2015Q2

REPORT INFORMATION
  Report Type: Spontaneous
  Country: US (occurrence: US)
  Receive Date: 20150527
  Receipt Date: 20150527
  Transmission Date: 20150821
  Serious: Yes (Other)
  Sender: FDA-Public Use
  Company Number: US-PFIZER INC-2015171239

PATIENT
  Age: 79 Year
  Sex: Female
  Weight: 77.98 kg

DRUGS (1)
  1. ATORVASTATIN CALCIUM. [Suspect]
     Active Substance: ATORVASTATIN CALCIUM
     Indication: CORONARY ARTERY DISEASE
     Dosage: 80 MG, 1X/DAY

REACTIONS (6)
  - Dry eye [Unknown]
  - Drug intolerance [Recovered/Resolved]
  - Aortic aneurysm [Unknown]
  - Neuropathy peripheral [Unknown]
  - Malaise [Recovered/Resolved]
  - Arthralgia [Recovered/Resolved]

NARRATIVE: CASE EVENT DATE: 2009
